FAERS Safety Report 5762457-3 (Version None)
Quarter: 2008Q2

REPORT INFORMATION
  Report Type: 
  Country: None (occurrence: None)
  Receive Date: 20080609
  Receipt Date: 20080529
  Transmission Date: 20081010
  Serious: Yes (Other)
  Sender: FDA-Public Use
  Company Number: US-BAYER-200824462NA

PATIENT

DRUGS (1)
  1. ULTRAVIST (PHARMACY BULK) [Suspect]
     Indication: COMPUTERISED TOMOGRAM THORAX
     Dates: start: 20080430, end: 20080430

REACTIONS (4)
  - CHEST DISCOMFORT [None]
  - FEELING HOT [None]
  - FLUSHING [None]
  - RESPIRATORY DISTRESS [None]
